FAERS Safety Report 12641110 (Version 2)
Quarter: 2017Q1

REPORT INFORMATION
  Report Type: Spontaneous
  Country: US (occurrence: US)
  Receive Date: 20160810
  Receipt Date: 20170117
  Transmission Date: 20170428
  Serious: Yes (Other)
  Sender: FDA-Public Use
  Company Number: ALCN2016US005542

PATIENT
  Age: 77 Year
  Sex: Female
  Weight: 42.63 kg

DRUGS (2)
  1. LATANOPROST. [Concomitant]
     Active Substance: LATANOPROST
     Indication: PRODUCT USED FOR UNKNOWN INDICATION
     Dosage: UNK GTT, QD (ONCE A DAY BOTH EYES AT BED TIME)
     Route: 047
     Dates: start: 2016
  2. TIMOLOL. [Suspect]
     Active Substance: TIMOLOL
     Indication: NORMAL TENSION GLAUCOMA
     Dosage: 1 GTT, QHS
     Route: 047
     Dates: start: 2014

REACTIONS (5)
  - Bradycardia [Recovering/Resolving]
  - Ventricular extrasystoles [Recovering/Resolving]
  - Asthenia [Recovering/Resolving]
  - Arteriosclerosis [Recovering/Resolving]
  - Syncope [Recovering/Resolving]

NARRATIVE: CASE EVENT DATE: 20160728
